FAERS Safety Report 13398497 (Version 2)
Quarter: 2017Q3

REPORT INFORMATION
  Report Type: Spontaneous
  Country: US (occurrence: US)
  Receive Date: 20170403
  Receipt Date: 20170906
  Transmission Date: 20171127
  Serious: Yes (Hospitalization)
  Sender: FDA-Public Use
  Company Number: US-VIFOR (INTERNATIONAL) INC.-VIT-2017-03446

PATIENT
  Sex: Male

DRUGS (18)
  1. LANTUS [Concomitant]
     Active Substance: INSULIN GLARGINE
  2. METOPROLOL. [Concomitant]
     Active Substance: METOPROLOL
  3. GABAPENTIN. [Concomitant]
     Active Substance: GABAPENTIN
  4. ACETYLCYSTEINE. [Concomitant]
     Active Substance: ACETYLCYSTEINE
  5. VELTASSA [Suspect]
     Active Substance: PATIROMER
     Indication: HYPERKALAEMIA
     Route: 048
  6. CEFUROXIME. [Concomitant]
     Active Substance: CEFUROXIME
  7. ERGOCALCIFEROL. [Concomitant]
     Active Substance: ERGOCALCIFEROL
  8. NOVOLOG [Concomitant]
     Active Substance: INSULIN ASPART
  9. AMLODIPINE [Concomitant]
     Active Substance: AMLODIPINE BESYLATE
  10. IPRATROPIUM BROMIDE/ALBUTEROL [Concomitant]
  11. FENTANYL. [Concomitant]
     Active Substance: FENTANYL
  12. AMMONIUM LACTATE. [Concomitant]
     Active Substance: AMMONIUM LACTATE
  13. WARFARIN [Concomitant]
     Active Substance: WARFARIN
  14. TRAMADOL. [Concomitant]
     Active Substance: TRAMADOL
  15. AMIODARONE [Concomitant]
     Active Substance: AMIODARONE
  16. FAMOTIDINE. [Concomitant]
     Active Substance: FAMOTIDINE
  17. LEVETIRACETAM. [Concomitant]
     Active Substance: LEVETIRACETAM
  18. CALCIUM ACETATE. [Concomitant]
     Active Substance: CALCIUM ACETATE

REACTIONS (1)
  - Hospitalisation [Unknown]

NARRATIVE: CASE EVENT DATE: 2017
